FAERS Safety Report 4909862-2 (Version None)
Quarter: 2006Q1

REPORT INFORMATION
  Report Type: 
  Country: None (occurrence: None)
  Receive Date: 20060213
  Receipt Date: 20060131
  Transmission Date: 20060701
  Serious: Yes (Life-Threatening)
  Sender: FDA-Public Use
  Company Number: PHBS2006ES01731

PATIENT
  Age: 68 Year
  Sex: Male

DRUGS (3)
  1. ATENOLOL [Suspect]
     Indication: HYPERTENSION
  2. PRAVASTATIN [Suspect]
     Indication: HYPERCHOLESTEROLAEMIA
  3. VALSARTAN [Suspect]
     Indication: HYPERTENSION

REACTIONS (9)
  - ACUTE MYOCARDIAL INFARCTION [None]
  - ARRHYTHMIA SUPRAVENTRICULAR [None]
  - ARTERIAL STENT INSERTION [None]
  - BUNDLE BRANCH BLOCK LEFT [None]
  - BUNDLE BRANCH BLOCK RIGHT [None]
  - CARDIAC DISORDER [None]
  - CARDIOGENIC SHOCK [None]
  - CORONARY ARTERY OCCLUSION [None]
  - ELECTROCARDIOGRAM ST SEGMENT DEPRESSION [None]
